FAERS Safety Report 7445169-X (Version None)
Quarter: 2011Q2

REPORT INFORMATION
  Report Type: 
  Country: None (occurrence: None)
  Receive Date: 20110429
  Receipt Date: 20110420
  Transmission Date: 20111010
  Serious: Yes (Life-Threatening)
  Sender: FDA-Public Use
  Company Number: CN-JNJFOC-20110411529

PATIENT
  Age: 59 Year
  Sex: Female

DRUGS (3)
  1. DURAGESIC-100 [Suspect]
     Indication: BACK PAIN
     Route: 062
  2. DURAGESIC-100 [Suspect]
     Route: 062
  3. EXEMESTANE [Concomitant]
     Indication: BREAST CANCER METASTATIC
     Route: 048

REACTIONS (5)
  - HYPERSOMNIA [None]
  - LOSS OF CONSCIOUSNESS [None]
  - MUSCULOSKELETAL STIFFNESS [None]
  - OVERDOSE [None]
  - TETANY [None]
